FAERS Safety Report 6830829-1 (Version None)
Quarter: 2010Q3

REPORT INFORMATION
  Report Type: 
  Country: None (occurrence: None)
  Receive Date: 20100706
  Receipt Date: 20100621
  Transmission Date: 20110219
  Serious: Yes (Death, Life-Threatening, Hospitalization, Other)
  Sender: FDA-Public Use
  Company Number: 2010AC000088

PATIENT
  Age: 78 Year
  Sex: Female

DRUGS (7)
  1. DIGOXIN [Suspect]
     Dates: start: 20060701, end: 20080101
  2. DIGOXIN [Suspect]
     Indication: HEART RATE IRREGULAR
     Dosage: 0.125 MG;PO
     Route: 048
     Dates: start: 20030930, end: 20060902
  3. DIGOXIN [Suspect]
     Dosage: 0.250 MG;PO
     Route: 048
     Dates: start: 20061016, end: 20071127
  4. ALBUTEROL [Concomitant]
  5. COUMADIN [Concomitant]
  6. DOPAMINE HCL [Concomitant]
  7. ATROPINE [Concomitant]

REACTIONS (40)
  - AORTIC DISORDER [None]
  - ATRIAL FIBRILLATION [None]
  - ATRIOVENTRICULAR DISSOCIATION [None]
  - BRADYCARDIA [None]
  - BUNDLE BRANCH BLOCK LEFT [None]
  - CARDIAC ARREST [None]
  - CARDIAC FAILURE CONGESTIVE [None]
  - CARDIOACTIVE DRUG LEVEL INCREASED [None]
  - CARDIOMEGALY [None]
  - CEREBRAL ARTERY OCCLUSION [None]
  - CEREBRAL INFARCTION [None]
  - DECUBITUS ULCER [None]
  - DEHYDRATION [None]
  - ECONOMIC PROBLEM [None]
  - ELECTROCARDIOGRAM QRS COMPLEX PROLONGED [None]
  - ENTEROCOCCUS TEST POSITIVE [None]
  - ESCHERICHIA TEST POSITIVE [None]
  - GASTROENTERITIS [None]
  - HYPOTENSION [None]
  - KLEBSIELLA TEST POSITIVE [None]
  - LEFT VENTRICULAR DYSFUNCTION [None]
  - MENTAL STATUS CHANGES [None]
  - MITRAL VALVE INCOMPETENCE [None]
  - MULTIPLE INJURIES [None]
  - NAUSEA [None]
  - NODAL ARRHYTHMIA [None]
  - PNEUMONIA STREPTOCOCCAL [None]
  - PULMONARY HYPERTENSION [None]
  - PULSE ABNORMAL [None]
  - QRS AXIS ABNORMAL [None]
  - RALES [None]
  - RENAL FAILURE ACUTE [None]
  - RESPIRATORY DEPRESSION [None]
  - STAPHYLOCOCCUS TEST POSITIVE [None]
  - TACHYPNOEA [None]
  - THERAPEUTIC AGENT TOXICITY [None]
  - UNEVALUABLE EVENT [None]
  - UNRESPONSIVE TO STIMULI [None]
  - VENOUS THROMBOSIS [None]
  - VIRAL INFECTION [None]
